FAERS Safety Report 21006624 (Version 3)
Quarter: 2022Q4

REPORT INFORMATION
  Report Type: Report from Study
  Country: CA (occurrence: CA)
  Receive Date: 20220625
  Receipt Date: 20221116
  Transmission Date: 20230112
  Serious: Yes (Hospitalization)
  Sender: FDA-Public Use
  Company Number: CA-ABBVIE-22K-028-4445228-00

PATIENT
  Age: 61 Year
  Sex: Male
  Weight: 105 kg

DRUGS (26)
  1. RISANKIZUMAB [Suspect]
     Active Substance: RISANKIZUMAB
     Indication: Psoriasis
     Route: 058
     Dates: start: 20200429, end: 20200527
  2. RISANKIZUMAB [Suspect]
     Active Substance: RISANKIZUMAB
     Indication: Psoriasis
     Route: 058
     Dates: start: 20200528, end: 20220615
  3. RISANKIZUMAB [Suspect]
     Active Substance: RISANKIZUMAB
     Route: 058
  4. RIBAVIRIN [Concomitant]
     Active Substance: RIBAVIRIN
     Indication: Hepatic cirrhosis
     Route: 048
     Dates: start: 20200410, end: 202007
  5. SOFOSBUVIR [Concomitant]
     Active Substance: SOFOSBUVIR
     Indication: Hepatic cirrhosis
     Route: 048
     Dates: start: 20200410, end: 202007
  6. FUROSEMIDE [Concomitant]
     Active Substance: FUROSEMIDE
     Indication: Portal hypertension
     Route: 048
     Dates: start: 20191001, end: 20220313
  7. FUROSEMIDE [Concomitant]
     Active Substance: FUROSEMIDE
     Indication: Portal hypertension
     Route: 048
     Dates: start: 20210314
  8. SPIRONOLACTONE [Concomitant]
     Active Substance: SPIRONOLACTONE
     Indication: Portal hypertension
     Route: 048
     Dates: start: 20191001, end: 20220313
  9. SPIRONOLACTONE [Concomitant]
     Active Substance: SPIRONOLACTONE
     Indication: Portal hypertension
     Route: 048
     Dates: start: 20220314
  10. ZOPICLONE [Concomitant]
     Active Substance: ZOPICLONE
     Indication: Insomnia
     Route: 048
     Dates: start: 20200416, end: 202007
  11. MELATONIN [Concomitant]
     Active Substance: MELATONIN
     Indication: Insomnia
     Route: 048
     Dates: start: 202007
  12. QUETIAPINE [Concomitant]
     Active Substance: QUETIAPINE
     Indication: Insomnia
     Route: 048
  13. QUETIAPINE [Concomitant]
     Active Substance: QUETIAPINE
     Indication: Insomnia
     Route: 048
     Dates: start: 20220314
  14. CITALOPRAM [Concomitant]
     Active Substance: CITALOPRAM HYDROBROMIDE
     Indication: Depression
     Route: 048
     Dates: start: 202009
  15. CEFTRIAXONE [Concomitant]
     Active Substance: CEFTRIAXONE
     Indication: Cellulitis
     Route: 042
     Dates: start: 20211025, end: 20211025
  16. VANCOMYCIN [Concomitant]
     Active Substance: VANCOMYCIN
     Indication: Cellulitis
     Route: 042
     Dates: start: 20211025, end: 20211025
  17. DALTEPARIN [Concomitant]
     Active Substance: DALTEPARIN
     Indication: Cellulitis
     Route: 042
     Dates: start: 20211028, end: 20211028
  18. AMOXICILLIN\CLAVULANATE POTASSIUM [Concomitant]
     Active Substance: AMOXICILLIN\CLAVULANATE POTASSIUM
     Indication: Cellulitis
     Route: 048
     Dates: start: 20211028, end: 20211105
  19. AMOXICILLIN\CLAVULANATE POTASSIUM [Concomitant]
     Active Substance: AMOXICILLIN\CLAVULANATE POTASSIUM
     Indication: Cellulitis
     Route: 048
     Dates: start: 20211028, end: 20211105
  20. TYLENOL [Concomitant]
     Active Substance: ACETAMINOPHEN
     Indication: Cellulitis
     Dosage: FREQUENCY TEXT: 1-2 TAB PER 6 HOUR/PRN
     Route: 048
     Dates: start: 20211025, end: 20211028
  21. TYLENOL [Concomitant]
     Active Substance: ACETAMINOPHEN
     Indication: Cellulitis
     Dosage: 1-2 TABLETS
     Route: 048
     Dates: start: 20211104, end: 20211105
  22. HYDROMORPHONE [Concomitant]
     Active Substance: HYDROMORPHONE
     Indication: Cellulitis
     Dosage: FREQUENCY TEXT: 0.5-1.0 MG PER 6 HOUR/ PRN
     Route: 042
     Dates: start: 20211028, end: 20211028
  23. VALIUM [Concomitant]
     Active Substance: DIAZEPAM
     Indication: Failure to thrive
     Dosage: FREQUENCY TEXT: PER 2 HOUR/PRN
     Route: 048
     Dates: start: 20211104, end: 20211105
  24. APIXABAN [Concomitant]
     Active Substance: APIXABAN
     Indication: Thrombosis prophylaxis
     Route: 048
     Dates: start: 20220314
  25. ROSUVASTATIN [Concomitant]
     Active Substance: ROSUVASTATIN
     Indication: Dyslipidaemia
     Route: 048
     Dates: start: 20220314
  26. LASIX [Concomitant]
     Active Substance: FUROSEMIDE
     Indication: Product used for unknown indication

REACTIONS (1)
  - Hypervolaemia [Not Recovered/Not Resolved]

NARRATIVE: CASE EVENT DATE: 20220607
